FAERS Safety Report 6264262-0 (Version None)
Quarter: 2009Q3

REPORT INFORMATION
  Report Type: 
  Country: None (occurrence: None)
  Receive Date: 20090710
  Receipt Date: 20090701
  Transmission Date: 20100115
  Serious: Yes (Other)
  Sender: FDA-Public Use
  Company Number: US-ABBOTT-09P-163-0562885-00

PATIENT
  Sex: Male
  Weight: 100 kg

DRUGS (19)
  1. HUMIRA [Suspect]
     Indication: PSORIASIS
     Route: 058
     Dates: start: 20060124
  2. TUMS [Concomitant]
     Indication: GASTROOESOPHAGEAL REFLUX DISEASE
     Dosage: 1-2 TABS
     Dates: start: 19930101
  3. NORVASC [Concomitant]
     Indication: HYPERTENSION
     Dates: start: 20060408
  4. TOPROL-XL [Concomitant]
     Indication: CARDIOVASCULAR DISORDER
     Dates: start: 20060408
  5. HUMALOG [Concomitant]
     Indication: DIABETES MELLITUS
     Dates: start: 20060408
  6. LANTUS [Concomitant]
     Indication: DIABETES MELLITUS
     Dates: start: 20060408
  7. ASPIRIN [Concomitant]
     Indication: CARDIOVASCULAR EVENT PROPHYLAXIS
     Dates: start: 20060427
  8. GLUCOSAMINE [Concomitant]
     Indication: ARTHRALGIA
     Dates: start: 20060914
  9. ETODOLAC [Concomitant]
     Indication: BACK PAIN
     Dates: start: 20070206
  10. DIOVAN [Concomitant]
     Indication: HYPERTENSION
     Dates: start: 20070516
  11. CRESTOR [Concomitant]
     Indication: HYPERCHOLESTEROLAEMIA
     Dates: start: 20070516
  12. HYDROCHLOROTHIAZIDE [Concomitant]
     Indication: CARDIOVASCULAR DISORDER
     Dates: start: 20070627
  13. HYDROCHLOROTHIAZIDE [Concomitant]
     Indication: HYPERTENSION
  14. HYDROCHLOROTHIAZIDE [Concomitant]
     Indication: HYPERCHOLESTEROLAEMIA
  15. HYDROCODONE BITARTRATE [Concomitant]
     Indication: PROCEDURAL PAIN
     Dosage: 5/325 = 1 TAB
     Dates: start: 20071106
  16. MOTRIN [Concomitant]
     Indication: MUSCULOSKELETAL PAIN
     Dates: start: 20080517, end: 20080701
  17. LORTAB [Concomitant]
     Indication: MUSCULOSKELETAL PAIN
     Dates: start: 20080517, end: 20080701
  18. COMBIGAN [Concomitant]
     Indication: INTRAOCULAR PRESSURE INCREASED
     Dates: start: 20081021
  19. LUMIGAN [Concomitant]
     Indication: INTRAOCULAR PRESSURE INCREASED
     Dates: start: 20081021

REACTIONS (1)
  - MALIGNANT MELANOMA IN SITU [None]
